FAERS Safety Report 7413849-8 (Version None)
Quarter: 2011Q2

REPORT INFORMATION
  Report Type: 
  Country: None (occurrence: None)
  Receive Date: 20110413
  Receipt Date: 20110401
  Transmission Date: 20111010
  Serious: Yes (Life-Threatening, Other)
  Sender: FDA-Public Use
  Company Number: US-BAYER-2011-029278

PATIENT
  Sex: Male

DRUGS (2)
  1. AVELOX [Suspect]
     Indication: COUGH
     Dosage: 400 MG, ONCE
     Route: 048
  2. SYMBICORT [Concomitant]

REACTIONS (4)
  - DYSPNOEA [None]
  - CHILLS [None]
  - HYPERSENSITIVITY [None]
  - GENERALISED ERYTHEMA [None]
